FAERS Safety Report 18283387 (Version 1)
Quarter: 2020Q3

REPORT INFORMATION
  Report Type: Spontaneous
  Country: AU (occurrence: AU)
  Receive Date: 20200918
  Receipt Date: 20200918
  Transmission Date: 20201103
  Serious: Yes (Other)
  Sender: FDA-Public Use
  Company Number: AU-MYLANLABS-2020M1079830

PATIENT
  Age: 26 Year
  Sex: Male

DRUGS (3)
  1. ADALIMUMAB [Suspect]
     Active Substance: ADALIMUMAB
     Indication: CHORIORETINITIS
     Dosage: 40 MILLIGRAM, Q2W,FORTNIGHTLY
     Route: 065
  2. METHOTREXATE. [Suspect]
     Active Substance: METHOTREXATE
     Indication: CHORIORETINITIS
     Dosage: 20 MILLIGRAM, QW
     Route: 048
  3. PREDNISOLONE. [Suspect]
     Active Substance: PREDNISOLONE
     Indication: CHORIORETINITIS
     Dosage: TAPERING DOSE
     Route: 065

REACTIONS (8)
  - Disseminated tuberculosis [Recovering/Resolving]
  - Tuberculosis [Recovering/Resolving]
  - Pleural effusion [Recovering/Resolving]
  - Off label use [Unknown]
  - Pericardial effusion [Recovering/Resolving]
  - Osteomyelitis [Recovering/Resolving]
  - Brain abscess [Recovering/Resolving]
  - Encephalitis [Recovering/Resolving]
